FAERS Safety Report 6089515-0 (Version None)
Quarter: 2009Q1

REPORT INFORMATION
  Report Type: 
  Country: None (occurrence: None)
  Receive Date: 20090224
  Receipt Date: 20090212
  Transmission Date: 20090719
  Serious: Yes (Other)
  Sender: FDA-Public Use
  Company Number: US-PFIZER INC-2009171419

PATIENT
  Sex: Female

DRUGS (9)
  1. LYRICA [Suspect]
     Indication: FIBROMYALGIA
     Dosage: 50 MG, 1X/DAY
     Dates: start: 20070101
  2. ULTRAM ER [Concomitant]
     Indication: PAIN
     Dosage: UNK
  3. SINGULAIR [Concomitant]
     Indication: ASTHMA
     Dosage: UNK
  4. CYMBALTA [Concomitant]
     Indication: NEURALGIA
     Dosage: UNK
  5. CYMBALTA [Concomitant]
     Indication: DEPRESSION
  6. NORVASC [Concomitant]
     Indication: HYPERTENSION
     Dosage: UNK
  7. ALBUTEROL [Concomitant]
     Indication: ASTHMA
     Dosage: UNK
  8. FLOVENT [Concomitant]
     Dosage: UNK
  9. HYDROCODONE [Concomitant]
     Indication: PAIN
     Dosage: UNK

REACTIONS (5)
  - ARTHROPATHY [None]
  - DYSPNOEA [None]
  - PAIN [None]
  - SWELLING [None]
  - WEIGHT INCREASED [None]
